FAERS Safety Report 20012411 (Version 1)
Quarter: 2021Q4

REPORT INFORMATION
  Report Type: Report from Study
  Country: US (occurrence: US)
  Receive Date: 20211029
  Receipt Date: 20211029
  Transmission Date: 20220304
  Serious: No
  Sender: FDA-Public Use
  Company Number: US-KYOWAKIRIN-2021BKK018013

PATIENT

DRUGS (1)
  1. CRYSVITA [Suspect]
     Active Substance: BUROSUMAB-TWZA
     Indication: Hypophosphataemic osteomalacia
     Dosage: 30 MG, Q4W
     Route: 065
     Dates: start: 20210920

REACTIONS (3)
  - Bone pain [Unknown]
  - Malaise [Unknown]
  - Blood phosphorus increased [Unknown]
